FAERS Safety Report 6781941-7 (Version None)
Quarter: 2010Q2

REPORT INFORMATION
  Report Type: 
  Country: None (occurrence: None)
  Receive Date: 20100621
  Receipt Date: 20100610
  Transmission Date: 20101027
  Serious: Yes (Disabling, Other)
  Sender: FDA-Public Use
  Company Number: US-ELI_LILLY_AND_COMPANY-US201006003497

PATIENT
  Sex: Male

DRUGS (1)
  1. EFFIENT [Suspect]

REACTIONS (4)
  - ABASIA [None]
  - APHASIA [None]
  - BRAIN STEM HAEMORRHAGE [None]
  - TRANSIENT ISCHAEMIC ATTACK [None]
